FAERS Safety Report 14363975 (Version 1)
Quarter: 2018Q1

REPORT INFORMATION
  Report Type: Report from Study
  Country: US (occurrence: US)
  Receive Date: 20180108
  Receipt Date: 20180108
  Transmission Date: 20180509
  Serious: Yes (Hospitalization)
  Sender: FDA-Public Use
  Company Number: US-EISAI MEDICAL RESEARCH-EC-2017-033392

PATIENT
  Age: 59 Year
  Sex: Female
  Weight: 88.5 kg

DRUGS (11)
  1. FISH OIL [Concomitant]
     Active Substance: FISH OIL
  2. JANUVIA [Concomitant]
     Active Substance: SITAGLIPTIN PHOSPHATE
  3. ATENOLOL. [Concomitant]
     Active Substance: ATENOLOL
  4. HAIR AND NAILS VITAMIN [Concomitant]
  5. GLIPIZIDE. [Concomitant]
     Active Substance: GLIPIZIDE
  6. AFINITOR [Concomitant]
     Active Substance: EVEROLIMUS
  7. L-LYSINE [Concomitant]
     Active Substance: LYSINE
  8. LENVIMA [Suspect]
     Active Substance: LENVATINIB
     Indication: RENAL CANCER
     Route: 048
     Dates: start: 201711, end: 20180102
  9. LOSARTAN POTASSIUM. [Concomitant]
     Active Substance: LOSARTAN POTASSIUM
  10. SYNTHROID [Concomitant]
     Active Substance: LEVOTHYROXINE SODIUM
  11. OMEPRAZOLE. [Concomitant]
     Active Substance: OMEPRAZOLE

REACTIONS (6)
  - Vomiting [Recovering/Resolving]
  - Arthralgia [Recovering/Resolving]
  - Rash pruritic [Recovering/Resolving]
  - Hypertension [Unknown]
  - Hyperglycaemia [Unknown]
  - Dizziness [Unknown]

NARRATIVE: CASE EVENT DATE: 201711
